FAERS Safety Report 10311376 (Version 1)
Quarter: 2014Q3

REPORT INFORMATION
  Report Type: Spontaneous
  Country: US (occurrence: US)
  Receive Date: 20140717
  Receipt Date: 20140717
  Transmission Date: 20150326
  Serious: No
  Sender: FDA-Public Use
  Company Number: US-GILEAD-2014-0108799

PATIENT
  Sex: Female

DRUGS (3)
  1. TYVASO [Concomitant]
     Active Substance: TREPROSTINIL
  2. ADCIRCA [Concomitant]
     Active Substance: TADALAFIL
  3. LETAIRIS [Suspect]
     Active Substance: AMBRISENTAN
     Indication: COR PULMONALE CHRONIC
     Route: 065
     Dates: start: 20140630

REACTIONS (7)
  - Gait disturbance [Unknown]
  - Eye oedema [Unknown]
  - Localised oedema [Unknown]
  - Eye pruritus [Unknown]
  - Eye pain [Unknown]
  - Oedema peripheral [Unknown]
  - Back pain [Unknown]
